APPROVED DRUG PRODUCT: LESCOL
Active Ingredient: FLUVASTATIN SODIUM
Strength: EQ 40MG BASE **Federal Register determination that product was not discontinued or withdrawn for safety or effectiveness reasons**
Dosage Form/Route: CAPSULE;ORAL
Application: N020261 | Product #002
Applicant: NOVARTIS PHARMACEUTICALS CORP
Approved: Dec 31, 1993 | RLD: Yes | RS: No | Type: DISCN